FAERS Safety Report 26211021 (Version 1)
Quarter: 2025Q4

REPORT INFORMATION
  Report Type: Report from Study
  Country: HK (occurrence: HK)
  Receive Date: 20251230
  Receipt Date: 20251230
  Transmission Date: 20260118
  Serious: Yes (Death, Other)
  Sender: ROCHE
  Company Number: HK-ROCHE-3467249

PATIENT

DRUGS (8)
  1. RITUXIMAB [Suspect]
     Active Substance: RITUXIMAB
     Indication: Lupus nephritis
  2. MYCOPHENOLATE MOFETIL [Suspect]
     Active Substance: MYCOPHENOLATE MOFETIL
     Indication: Lupus nephritis
     Dosage: LATER TAPERED TO 600-900 MG/ M2/DAY
  3. CYCLOPHOSPHAMIDE [Suspect]
     Active Substance: CYCLOPHOSPHAMIDE
     Indication: Lupus nephritis
     Dosage: 0.5-1 G/M2/MONTH FOR 6 MONTHS
  4. METHYLPREDNISOLONE [Suspect]
     Active Substance: METHYLPREDNISOLONE
     Indication: Lupus nephritis
     Dosage: 300-600 MG/M2/DOSE FOR 3 DOSES, MAXIMUM 1 G/DOSE
     Route: 042
  5. AZATHIOPRINE [Suspect]
     Active Substance: AZATHIOPRINE
     Indication: Lupus nephritis
     Dosage: 1.5-2 MG/KG/DAY
  6. CYCLOSPORINE [Suspect]
     Active Substance: CYCLOSPORINE
     Indication: Lupus nephritis
  7. TACROLIMUS [Suspect]
     Active Substance: TACROLIMUS
     Indication: Lupus nephritis
  8. PREDNISOLONE [Suspect]
     Active Substance: PREDNISOLONE
     Indication: Lupus nephritis
     Dosage: (OR 0.3 MG/KG/DAY IN YOUNG CHILDREN) BY 4 MONTHS AFTER TREATMENT INITIATION

REACTIONS (8)
  - Infection [Unknown]
  - Urinary tract infection [Fatal]
  - Osteopenia [Unknown]
  - Hypertension [Unknown]
  - Short stature [Unknown]
  - Diabetes mellitus [Unknown]
  - Cardiovascular disorder [Unknown]
  - Osteonecrosis [Unknown]
